FAERS Safety Report 13300744 (Version 1)
Quarter: 2017Q1

REPORT INFORMATION
  Report Type: Spontaneous
  Country: US (occurrence: US)
  Receive Date: 20170307
  Receipt Date: 20170307
  Transmission Date: 20170428
  Serious: Yes (Other)
  Sender: FDA-Public Use
  Company Number: US-ALEMBIC PHARMACUETICALS LIMITED-2017SCAL000207

PATIENT

DRUGS (1)
  1. DULOXETINE DR CAPSULE [Suspect]
     Active Substance: DULOXETINE HYDROCHLORIDE
     Indication: PAIN
     Dosage: 30 MG, QD

REACTIONS (2)
  - Stiff person syndrome [Recovering/Resolving]
  - Condition aggravated [Recovering/Resolving]
